FAERS Safety Report 7772973-0 (Version None)
Quarter: 2011Q3

REPORT INFORMATION
  Report Type: 
  Country: None (occurrence: None)
  Receive Date: 20110922
  Receipt Date: 20110105
  Transmission Date: 20111222
  Serious: No
  Sender: FDA-Public Use
  Company Number: US-ASTRAZENECA-2010SE58818

PATIENT
  Age: 65 Year
  Sex: Female
  Weight: 165 kg

DRUGS (6)
  1. GLYBURIDE [Concomitant]
     Indication: DIABETES MELLITUS
  2. PRAVASTATIN SODIUM [Concomitant]
     Indication: HYPERCHOLESTEROLAEMIA
  3. METOPROLOL [Concomitant]
     Indication: HYPERTENSION
  4. SEROQUEL XR [Suspect]
     Indication: BIPOLAR I DISORDER
     Route: 048
     Dates: start: 20100101, end: 20110104
  5. SEROQUEL XR [Suspect]
     Route: 048
     Dates: start: 20110104
  6. METFORMIN [Concomitant]

REACTIONS (3)
  - FATIGUE [None]
  - DIZZINESS [None]
  - FALL [None]
